FAERS Safety Report 16646168 (Version 1)
Quarter: 2019Q3

REPORT INFORMATION
  Report Type: Spontaneous
  Country: US (occurrence: US)
  Receive Date: 20190730
  Receipt Date: 20190730
  Transmission Date: 20191004
  Serious: No
  Sender: FDA-Public Use
  Company Number: US-TEVA-2019-US-1082738

PATIENT
  Sex: Male

DRUGS (1)
  1. AUSTEDO [Suspect]
     Active Substance: DEUTETRABENAZINE
     Indication: DYSKINESIA
     Dosage: TWICE DAILY ON WEEK 3
     Route: 048

REACTIONS (3)
  - Somnolence [Unknown]
  - Product dispensing error [Unknown]
  - Incorrect dose administered [Unknown]
